FAERS Safety Report 9194220 (Version 2)
Quarter: 2013Q2

REPORT INFORMATION
  Report Type: Spontaneous
  Country: JP (occurrence: JP)
  Receive Date: 20130327
  Receipt Date: 20130423
  Transmission Date: 20140414
  Serious: Yes (Other)
  Sender: FDA-Public Use
  Company Number: JP-OTSUKA-JP-2013-10741

PATIENT
  Age: 68 Year
  Sex: Female
  Weight: 66 kg

DRUGS (11)
  1. PLETAAL [Suspect]
     Dosage: 100 MG MILLIGRAM(S), DAILY DOSE
     Route: 048
  2. DABIGATRAN ETEXILATE METHANESULFNATE [Suspect]
     Dosage: 150 MG MILLIGRAM(S), BID
     Route: 048
     Dates: start: 201104
  3. THEODUR [Concomitant]
     Dosage: 200 MG MILLIGRAM(S), DAILY DOSE
     Route: 048
  4. RABEPRAZOLE SODIUM [Concomitant]
     Dosage: 10 MG MILLIGRAM(S), DAILY DOSE
     Route: 048
  5. RABEPRAZOLE SODIUM [Concomitant]
     Dosage: 20 MG MILLIGRAM(S), DAILY DOSE
     Route: 048
  6. AMLODIPINE [Concomitant]
     Dosage: 5 MG MILLIGRAM(S), DAILY DOSE
     Route: 048
  7. VALSARTAN [Concomitant]
     Dosage: 80 MG MILLIGRAM(S), DAILY DOSE
     Route: 048
  8. HYDROCHLOROTHIAZIDE [Concomitant]
     Dosage: 12.5 MG MILLIGRAM(S), DAILY DOSE
     Route: 048
  9. METFORMIN HYDROCHLORIDE [Concomitant]
     Dosage: 500 MG MILLIGRAM(S), DAILY DOSE
     Route: 048
  10. SITAGLIPTIN PHOSPHATE [Concomitant]
     Dosage: 50 MG MILLIGRAM(S), DAILY DOSE
     Route: 048
  11. EBASTINE [Concomitant]
     Dosage: 10 MG MILLIGRAM(S), DAILY DOSE
     Route: 048

REACTIONS (1)
  - Oesophageal ulcer [Recovered/Resolved]
